FAERS Safety Report 6177111-6 (Version None)
Quarter: 2009Q2

REPORT INFORMATION
  Report Type: 
  Country: None (occurrence: None)
  Receive Date: 20090430
  Receipt Date: 20090430
  Transmission Date: 20091009
  Serious: No
  Sender: FDA-Public Use
  Company Number: None

PATIENT
  Age: 52 Year
  Sex: Female
  Weight: 63.9572 kg

DRUGS (2)
  1. ACTONEL [Suspect]
     Indication: OSTEOPENIA
     Dosage: 1 EVERY WEEK BUCCAL
     Route: 002
     Dates: start: 20040511, end: 20050125
  2. FOSAMAX [Suspect]
     Indication: OSTEOPENIA
     Dosage: 70MG  1 EVERY WEEK BUCCAL
     Route: 002
     Dates: start: 20050125, end: 20080928

REACTIONS (1)
  - BONE EROSION [None]
